FAERS Safety Report 6574505-1 (Version None)
Quarter: 2010Q1

REPORT INFORMATION
  Report Type: 
  Country: None (occurrence: None)
  Receive Date: 20100209
  Receipt Date: 20091112
  Transmission Date: 20100710
  Serious: No
  Sender: FDA-Public Use
  Company Number: A0811999A

PATIENT
  Age: 26 Year
  Sex: Male

DRUGS (2)
  1. PAROXETINE HYDROCHLORIDE [Suspect]
     Dosage: 20MG PER DAY
     Route: 048
     Dates: end: 20090101
  2. NO CONCURRENT MEDICATION [Concomitant]

REACTIONS (5)
  - BALANCE DISORDER [None]
  - CONFUSIONAL STATE [None]
  - GAIT DISTURBANCE [None]
  - INSOMNIA [None]
  - WITHDRAWAL SYNDROME [None]
